FAERS Safety Report 21179979 (Version 1)
Quarter: 2022Q3

REPORT INFORMATION
  Report Type: Spontaneous
  Country: US (occurrence: None)
  Receive Date: 20220805
  Receipt Date: 20220805
  Transmission Date: 20221027
  Serious: Yes (Hospitalization)
  Sender: FDA-Public Use
  Company Number: None

PATIENT
  Age: 66 Year
  Sex: Male

DRUGS (1)
  1. WARFARIN [Suspect]
     Active Substance: WARFARIN
     Indication: Pulmonary embolism
     Dates: start: 20211027, end: 20220601

REACTIONS (2)
  - Subcapsular renal haematoma [None]
  - Haemorrhage [None]

NARRATIVE: CASE EVENT DATE: 20220601
